FAERS Safety Report 16922986 (Version 1)
Quarter: 2019Q4

REPORT INFORMATION
  Report Type: Spontaneous
  Country: DE (occurrence: DE)
  Receive Date: 20191016
  Receipt Date: 20191016
  Transmission Date: 20200122
  Serious: Yes (Other)
  Sender: FDA-Public Use
  Company Number: DE-CELLTRION INC.-2019DE024334

PATIENT

DRUGS (1)
  1. HERZUMA [Suspect]
     Active Substance: TRASTUZUMAB-PKRB
     Indication: PRODUCT USED FOR UNKNOWN INDICATION
     Dosage: 420 MG
     Dates: start: 20190815

REACTIONS (6)
  - Headache [Unknown]
  - Back pain [Unknown]
  - Chills [Unknown]
  - Dyspnoea [Unknown]
  - Nausea [Unknown]
  - Loss of consciousness [Unknown]
